FAERS Safety Report 8482078-1 (Version None)
Quarter: 2012Q3

REPORT INFORMATION
  Report Type: 
  Country: None (occurrence: None)
  Receive Date: 20120702
  Receipt Date: 20120627
  Transmission Date: 20120928
  Serious: Yes (Death)
  Sender: FDA-Public Use
  Company Number: GB-PFIZER INC-2012140937

PATIENT
  Age: 66 Year
  Sex: Female

DRUGS (25)
  1. FLUTICASONE PROPIONATE/SALMETEROL [Concomitant]
     Dosage: 2 DF, 2X/DAY
  2. AMITRIPTYLINE HCL [Concomitant]
     Dosage: 4 DF, 1X/DAY IN THE EVENING.
  3. BISACODYL [Concomitant]
     Dosage: 5 MG, 1X/DAY AT NIGHT
  4. MONTELUKAST SODIUM [Concomitant]
     Dosage: 10 MG, 1X/DAY AT NIGHT
  5. LACTULOSE [Concomitant]
     Dosage: 3.1-3.7G/5ML. 10 TO 20MLS THREE TIMES A DAY AS NECESSARY.
  6. NITROGLYCERIN [Concomitant]
     Indication: CHEST PAIN
     Dosage: ONE OR TWO PUFFS WHEN REQUIRED.
  7. BACLOFEN [Concomitant]
     Dosage: 10 MG, 3X/DAY
  8. FERROUS SULFATE TAB [Concomitant]
     Dosage: 1 DF, 1X/DAY FERROUS SULPHATE 325MG + FOLIC ACID 325MCG. NON-FORMULARY.
  9. OMEPRAZOLE [Concomitant]
     Dosage: 20 MG, 2X/DAY
  10. PREDNISOLONE [Concomitant]
     Dosage: 5 MG, 1X/DAY
  11. PREDNISOLONE [Concomitant]
     Dosage: 1 MG, 1X/DAY ONE MAXIMUM; THREE ALLOWED.
  12. ADCAL-D3 [Concomitant]
     Indication: BONE DISORDER
     Dosage: 1 DF, 2X/DAY  1 MAX; 6 ALLOWED.
  13. CARBOCISTEINE [Concomitant]
     Dosage: 2 DF, 3X/DAY
  14. GAVISCON [Concomitant]
     Dosage: 5 TO 10MLS FOUR TIMES A DAY.
  15. AZITHROMYCIN [Suspect]
     Indication: LOWER RESPIRATORY TRACT INFECTION
     Dosage: 250MG 3 TIMES PER WEEK ON MONDAY, WEDNESDAY AND FRIDAY
     Route: 048
     Dates: start: 20120327, end: 20120422
  16. CYANOCOBALAMIN [Concomitant]
     Dosage: 50 UG, 1X/DAY 2 MAX, 6 ALLOWED
  17. FOLIC ACID [Concomitant]
     Dosage: 1 DF, 1X/DAY FERROUS SULPHATE 325MG + 325MCG. NON-FORMULARY.
  18. PARACETAMOL [Concomitant]
     Dosage: 2 DF, 4X/DAY MAXIMUM 8 IN 24 HOURS.
  19. ALENDRONATE SODIUM [Concomitant]
     Dosage: 70 MG, ONCE PER WEEK
  20. TIOTROPIUM BROMIDE [Concomitant]
     Dosage: 18 UG, 1X/DAY
  21. VENTOLIN [Concomitant]
     Dosage: 2 DF, AS NEEDED
  22. CLONAZEPAM [Concomitant]
     Indication: MUSCLE RELAXANT THERAPY
     Dosage: 2 MG, 3X/DAY
  23. ISOSORBIDE MONONITRATE [Concomitant]
     Dosage: 40 MG, 2X/DAY ONE AT 8AM AND ONE AT 1PM.
  24. FENTANYL [Concomitant]
     Indication: PAIN
     Dosage: 1 DF, 100MCG/HOUR
  25. FUROSEMIDE [Concomitant]
     Dosage: 40 MG, 1X/DAY IN THE MORNING.

REACTIONS (1)
  - DEATH [None]
